FAERS Safety Report 25383321 (Version 2)
Quarter: 2025Q2

REPORT INFORMATION
  Report Type: Report from Study
  Country: CA (occurrence: CA)
  Receive Date: 20250602
  Receipt Date: 20250627
  Transmission Date: 20250716
  Serious: Yes (Hospitalization, Other)
  Sender: EMD SERONO INC
  Company Number: CA-Merck Healthcare KGaA-2025026782

PATIENT
  Age: 5 Year
  Sex: Female

DRUGS (4)
  1. SAIZEN [Suspect]
     Active Substance: SOMATROPIN
     Indication: Product used for unknown indication
     Dates: start: 20240501
  2. DESMOPRESSIN [Suspect]
     Active Substance: DESMOPRESSIN
     Indication: Product used for unknown indication
  3. SYNTHROID [Suspect]
     Active Substance: LEVOTHYROXINE SODIUM
     Indication: Product used for unknown indication
  4. CORTEF [Suspect]
     Active Substance: HYDROCORTISONE
     Indication: Product used for unknown indication

REACTIONS (5)
  - Gastrointestinal disorder [Unknown]
  - Influenza [Unknown]
  - Urinary tract infection [Unknown]
  - Dehydration [Unknown]
  - Vomiting [Unknown]

NARRATIVE: CASE EVENT DATE: 20250321
